FAERS Safety Report 24439196 (Version 1)
Quarter: 2024Q4

REPORT INFORMATION
  Report Type: Spontaneous
  Country: US (occurrence: US)
  Receive Date: 20241015
  Receipt Date: 20241015
  Transmission Date: 20250114
  Serious: No
  Sender: INSUD PHARMA
  Company Number: US-INSUD PHARMA-2410US07676

PATIENT

DRUGS (3)
  1. SLYND [Suspect]
     Active Substance: DROSPIRENONE
     Indication: Oral contraception
     Dosage: UNK
     Route: 048
     Dates: start: 2024
  2. SLYND [Suspect]
     Active Substance: DROSPIRENONE
     Indication: Menopause
  3. ESTROGENS [Suspect]
     Active Substance: ESTROGENS
     Indication: Menopause
     Dosage: UNK
     Route: 062
     Dates: start: 2024

REACTIONS (3)
  - Intermenstrual bleeding [Not Recovered/Not Resolved]
  - Drug effective for unapproved indication [Unknown]
  - Product use in unapproved indication [Unknown]

NARRATIVE: CASE EVENT DATE: 20240101
